FAERS Safety Report 18199093 (Version 1)
Quarter: 2020Q3

REPORT INFORMATION
  Report Type: Spontaneous
  Country: FR (occurrence: FR)
  Receive Date: 20200826
  Receipt Date: 20200826
  Transmission Date: 20201103
  Serious: Yes (Other)
  Sender: FDA-Public Use
  Company Number: FR-MYLANLABS-2020M1047879

PATIENT
  Age: 68 Year
  Sex: Male
  Weight: 64.5 kg

DRUGS (11)
  1. CLAFORAN [Concomitant]
     Active Substance: CEFOTAXIME SODIUM
     Dosage: UNK
  2. LANSOPRAZOLE. [Concomitant]
     Active Substance: LANSOPRAZOLE
     Dosage: UNK
  3. MACROGOL [Concomitant]
     Active Substance: POLYETHYLENE GLYCOLS
     Dosage: UNK
  4. TAZOCILLINE [Concomitant]
     Active Substance: PIPERACILLIN SODIUM\TAZOBACTAM SODIUM
     Dosage: UNK
  5. TAMIFLU [Concomitant]
     Active Substance: OSELTAMIVIR PHOSPHATE
     Dosage: UNK
  6. ZYVOXID [Concomitant]
     Active Substance: LINEZOLID
     Dosage: UNK
  7. LOPINAVIR/RITONAVIR MYLAN [Suspect]
     Active Substance: LOPINAVIR\RITONAVIR
     Indication: CORONAVIRUS INFECTION
     Dosage: 2 DOSAGE FORM, QD
     Route: 042
     Dates: start: 20200311, end: 20200315
  8. FORTUM                             /00559702/ [Concomitant]
     Active Substance: CEFTAZIDIME
     Dosage: UNK
  9. ROVAMYCINE                         /00074404/ [Concomitant]
     Active Substance: SPIRAMYCIN ADIPATE
     Dosage: UNK
  10. CASPOFUNGINE MYLAN [Concomitant]
     Active Substance: CASPOFUNGIN ACETATE
     Dosage: UNK
  11. FUROSEMIDE. [Concomitant]
     Active Substance: FUROSEMIDE
     Dosage: UNK

REACTIONS (3)
  - Hyperbilirubinaemia [Recovering/Resolving]
  - Off label use [Unknown]
  - Blood bilirubin increased [Recovering/Resolving]

NARRATIVE: CASE EVENT DATE: 20200311
